FAERS Safety Report 8032527-8 (Version None)
Quarter: 2011Q4

REPORT INFORMATION
  Report Type: 
  Country: None (occurrence: None)
  Receive Date: 20111202
  Receipt Date: 20100927
  Transmission Date: 20120403
  Serious: Yes (Hospitalization)
  Sender: FDA-Public Use
  Company Number: 2010SP051468

PATIENT
  Age: 26 Year
  Sex: Female
  Weight: 127.0072 kg

DRUGS (1)
  1. NUVARING [Suspect]
     Indication: CONTRACEPTION
     Dates: start: 20070426, end: 20070720

REACTIONS (12)
  - DEEP VEIN THROMBOSIS [None]
  - IRON DEFICIENCY ANAEMIA [None]
  - HEADACHE [None]
  - ROAD TRAFFIC ACCIDENT [None]
  - CARDIOMEGALY [None]
  - MENTAL DISORDER [None]
  - PULMONARY EMBOLISM [None]
  - MIGRAINE [None]
  - LIMB INJURY [None]
  - SUBSTANCE USE [None]
  - BACK PAIN [None]
  - INTERVERTEBRAL DISC PROTRUSION [None]
